FAERS Safety Report 11155818 (Version 1)
Quarter: 2015Q2

REPORT INFORMATION
  Report Type: Spontaneous
  Country: US (occurrence: US)
  Receive Date: 20150602
  Receipt Date: 20150602
  Transmission Date: 20150821
  Serious: No
  Sender: FDA-Public Use
  Company Number: US-ASTRAZENECA-2015SE53499

PATIENT
  Sex: Female
  Weight: 56.7 kg

DRUGS (5)
  1. NEXIUM [Suspect]
     Active Substance: ESOMEPRAZOLE MAGNESIUM
     Indication: GASTROOESOPHAGEAL REFLUX DISEASE
     Route: 048
  2. EVISTA (GENERIC) [Concomitant]
     Indication: ILL-DEFINED DISORDER
  3. LORAZEPAM. [Concomitant]
     Active Substance: LORAZEPAM
     Indication: FEELING OF RELAXATION
  4. NEXIUM [Suspect]
     Active Substance: ESOMEPRAZOLE MAGNESIUM
     Indication: GASTROOESOPHAGEAL REFLUX DISEASE
     Dosage: DAILY
     Route: 048
  5. LOVASTATIN. [Concomitant]
     Active Substance: LOVASTATIN
     Indication: BLOOD CHOLESTEROL ABNORMAL

REACTIONS (3)
  - Feeling abnormal [Not Recovered/Not Resolved]
  - Back pain [Not Recovered/Not Resolved]
  - Pelvic pain [Not Recovered/Not Resolved]
